FAERS Safety Report 4406496-3 (Version None)
Quarter: 2004Q3

REPORT INFORMATION
  Report Type: 
  Country: None (occurrence: None)
  Receive Date: 20040723
  Receipt Date: 19970904
  Transmission Date: 20050211
  Serious: Yes (Other)
  Sender: FDA-Public Use
  Company Number: AU-MERCK-0404AUS00060

PATIENT
  Age: 60 Year
  Sex: Female
  Weight: 64 kg

DRUGS (3)
  1. FOSAMAX [Suspect]
     Indication: OSTEOPOROSIS
     Route: 048
     Dates: start: 19970201, end: 19970501
  2. FOSAMAX [Suspect]
     Route: 048
     Dates: start: 19970501, end: 19970101
  3. FOSAMAX [Suspect]
     Route: 048
     Dates: start: 19970901

REACTIONS (1)
  - EPISCLERITIS [None]
